FAERS Safety Report 6504869-6 (Version None)
Quarter: 2009Q4

REPORT INFORMATION
  Report Type: 
  Country: None (occurrence: None)
  Receive Date: 20091216
  Receipt Date: 20091203
  Transmission Date: 20100525
  Serious: Yes (Hospitalization)
  Sender: FDA-Public Use
  Company Number: 2009SP039627

PATIENT
  Age: 39 Year
  Sex: Female

DRUGS (1)
  1. INTRON A [Suspect]

REACTIONS (11)
  - BEDRIDDEN [None]
  - DIARRHOEA [None]
  - DYSPNOEA [None]
  - GASTROENTERITIS [None]
  - LUNG INFILTRATION [None]
  - LUNG NEOPLASM [None]
  - PYREXIA [None]
  - RASH [None]
  - RENAL IMPAIRMENT [None]
  - RESPIRATORY DISORDER [None]
  - VOMITING [None]
